FAERS Safety Report 6529679-5 (Version None)
Quarter: 2010Q1

REPORT INFORMATION
  Report Type: 
  Country: None (occurrence: None)
  Receive Date: 20100107
  Receipt Date: 20100104
  Transmission Date: 20100710
  Serious: Yes (Hospitalization, Other)
  Sender: FDA-Public Use
  Company Number: PHEH2010US00454

PATIENT
  Sex: Female
  Weight: 57 kg

DRUGS (2)
  1. EXJADE [Suspect]
     Dosage: UNK
  2. PSYCHIATRIC MEDICATIONS [Concomitant]

REACTIONS (1)
  - PSYCHOTIC DISORDER [None]
